FAERS Safety Report 4459367-0 (Version None)
Quarter: 2004Q3

REPORT INFORMATION
  Report Type: 
  Country: None (occurrence: None)
  Receive Date: 20040927
  Receipt Date: 20040907
  Transmission Date: 20050211
  Serious: Yes (Hospitalization, Disabling)
  Sender: FDA-Public Use
  Company Number: CA-ROCHE-379865

PATIENT
  Age: 14 Year
  Sex: Female

DRUGS (4)
  1. ACCUTANE [Suspect]
     Indication: ACNE
     Route: 048
     Dates: start: 20021219, end: 20030115
  2. ACCUTANE [Suspect]
     Dosage: STRENGTH REPORTED AS 40 MG.
     Route: 048
     Dates: start: 20030124, end: 20030215
  3. ACCUTANE [Suspect]
     Route: 048
     Dates: start: 20030215, end: 20030315
  4. ACCUTANE [Suspect]
     Dosage: STRENGTH REPORTED AS 40 MG.
     Route: 048
     Dates: start: 20030402

REACTIONS (2)
  - HEPATITIS ACUTE [None]
  - SPLENOMEGALY [None]
